FAERS Safety Report 4535074-0 (Version None)
Quarter: 2004Q4

REPORT INFORMATION
  Report Type: 
  Country: None (occurrence: None)
  Receive Date: 20041222
  Receipt Date: 20041215
  Transmission Date: 20050328
  Serious: Yes (Life-Threatening)
  Sender: FDA-Public Use
  Company Number: FR-BRISTOL-MYERS SQUIBB COMPANY-12796231

PATIENT
  Age: 51 Year
  Sex: Male
  Weight: 90 kg

DRUGS (3)
  1. AMIKLIN POWDER [Suspect]
     Indication: PYREXIA
     Dates: start: 20041021, end: 20041022
  2. GENTAMYCIN SULFATE [Suspect]
     Indication: PYREXIA
     Route: 042
     Dates: start: 20041022, end: 20041028
  3. TARGOCID [Suspect]
     Indication: PYREXIA
     Route: 042
     Dates: start: 20041021, end: 20041102

REACTIONS (5)
  - ANAEMIA [None]
  - LEUKOPENIA [None]
  - RASH ERYTHEMATOUS [None]
  - RASH PAPULAR [None]
  - THROMBOCYTOPENIA [None]
